FAERS Safety Report 11326438 (Version 2)
Quarter: 2015Q3

REPORT INFORMATION
  Report Type: Spontaneous
  Country: CN (occurrence: CN)
  Receive Date: 20150731
  Receipt Date: 20150812
  Transmission Date: 20151125
  Serious: Yes (Other)
  Sender: FDA-Public Use
  Company Number: CN-JNJFOC-20150722011

PATIENT

DRUGS (3)
  1. ITRACONAZOLE. [Suspect]
     Active Substance: ITRACONAZOLE
     Indication: PRODUCT USED FOR UNKNOWN INDICATION
     Route: 048
  2. ITRACONAZOLE. [Suspect]
     Active Substance: ITRACONAZOLE
     Indication: PRODUCT USED FOR UNKNOWN INDICATION
     Route: 048
  3. ITRACONAZOLE. [Suspect]
     Active Substance: ITRACONAZOLE
     Indication: PRODUCT USED FOR UNKNOWN INDICATION
     Dosage: 5ML OF ITRACONAZOLE IS DILUTED WITH 50ML OF 0.9% SODIUM CHLORIDE??INJECTION IN PREPARATION
     Route: 042

REACTIONS (9)
  - Mucosal haemorrhage [Recovering/Resolving]
  - Proteinuria [Unknown]
  - Liver injury [Unknown]
  - Drug-induced liver injury [Unknown]
  - Cystitis haemorrhagic [Unknown]
  - Drug eruption [Unknown]
  - Menstrual disorder [Unknown]
  - Gastrointestinal injury [Recovering/Resolving]
  - Diarrhoea [Unknown]
